FAERS Safety Report 19056634 (Version 1)
Quarter: 2021Q1

REPORT INFORMATION
  Report Type: Spontaneous
  Country: US (occurrence: US)
  Receive Date: 20210325
  Receipt Date: 20210325
  Transmission Date: 20210420
  Serious: Yes (Life-Threatening, Hospitalization)
  Sender: FDA-Public Use
  Company Number: None

PATIENT
  Age: 16 Year
  Sex: Female
  Weight: 94.5 kg

DRUGS (6)
  1. LIDOCAINE PF [Suspect]
     Active Substance: LIDOCAINE
     Indication: PROCEDURAL PAIN
     Dosage: ?          OTHER FREQUENCY:8 ML/HR CONTINUOUS;?
     Dates: start: 20210322, end: 20210323
  2. PLASMALYTE [Concomitant]
     Active Substance: ELECTROLYTES NOS
     Dates: start: 20210322
  3. ZOFRAN [Concomitant]
     Active Substance: ONDANSETRON HYDROCHLORIDE
     Dates: start: 20210322
  4. HYDROMORPHONE [Concomitant]
     Active Substance: HYDROMORPHONE
     Dates: start: 20210322, end: 20210324
  5. ACETAMINOPHEN. [Concomitant]
     Active Substance: ACETAMINOPHEN
     Dates: start: 20210322
  6. TRAMADOL. [Concomitant]
     Active Substance: TRAMADOL
     Dates: start: 20210323, end: 20210323

REACTIONS (3)
  - Unresponsive to stimuli [None]
  - Visual impairment [None]
  - Vision blurred [None]

NARRATIVE: CASE EVENT DATE: 20210323
